FAERS Safety Report 18130873 (Version 1)
Quarter: 2020Q3

REPORT INFORMATION
  Report Type: Spontaneous
  Country: US (occurrence: US)
  Receive Date: 20200810
  Receipt Date: 20200810
  Transmission Date: 20201103
  Serious: Yes (Hospitalization)
  Sender: FDA-Public Use
  Company Number: US-FRESENIUS MEDICAL CARE RENAL THERAPIES GROUP-FMC-2008-000905

PATIENT
  Age: 74 Year
  Sex: Female
  Weight: 68 kg

DRUGS (20)
  1. ISOSORBIDE MONONITRATE. [Concomitant]
     Active Substance: ISOSORBIDE MONONITRATE
  2. AMLODIPINE [Concomitant]
     Active Substance: AMLODIPINE BESYLATE
  3. ASPIRIN. [Concomitant]
     Active Substance: ASPIRIN
  4. UBIQUINOL [Concomitant]
     Active Substance: UBIQUINOL
  5. DELFLEX WITH DEXTROSE 2.5% LOW MAGNESIUM LOW CALCIUM [Suspect]
     Active Substance: CALCIUM CHLORIDE\DEXTROSE\MAGNESIUM CHLORIDE\SODIUM CHLORIDE\SODIUM LACTATE
     Indication: END STAGE RENAL DISEASE
     Dosage: 6 EXCHANGES, FILL VOLUME 1900 ML, DWELL TIME 1 HOUR 20 MIN, LAST FILL 1500 ML, DAYTIME FILL VOLUME 1
     Route: 033
  6. ASCORBATE CALCIUM [Concomitant]
  7. ATORVASTATIN [Concomitant]
     Active Substance: ATORVASTATIN
  8. BUMETANIDE. [Concomitant]
     Active Substance: BUMETANIDE
  9. CHOLECALCIFEROL [Concomitant]
     Active Substance: CHOLECALCIFEROL
  10. COLCHICINE. [Concomitant]
     Active Substance: COLCHICINE
  11. FLUTICASONE PROPIONATE. [Concomitant]
     Active Substance: FLUTICASONE PROPIONATE
  12. DELFLEX WITH DEXTROSE 1.5% LOW MAGNESIUM LOW CALCIUM [Suspect]
     Active Substance: CALCIUM CHLORIDE\DEXTROSE\MAGNESIUM CHLORIDE\SODIUM CHLORIDE\SODIUM LACTATE
     Indication: END STAGE RENAL DISEASE
     Dosage: 6 EXCHANGES, FILL VOLUME 1900 ML, DWELL TIME 1 HOUR 20 MIN, LAST FILL 1500 ML, DAYTIME FILL VOLUME 1
     Route: 033
  13. DELFLEX WITH DEXTROSE 4.25% LOW MAGNESIUM LOW CALCIUM [Suspect]
     Active Substance: CALCIUM CHLORIDE\DEXTROSE\MAGNESIUM CHLORIDE\SODIUM CHLORIDE\SODIUM LACTATE
     Indication: END STAGE RENAL DISEASE
     Dosage: 6 EXCHANGES, FILL VOLUME 1900 ML, DWELL TIME 1 HOUR 20 MIN, LAST FILL 1500 ML, DAYTIME FILL VOLUME 1
     Route: 033
  14. ACETAMINOPHEN. [Concomitant]
     Active Substance: ACETAMINOPHEN
  15. CARVEDILOL. [Concomitant]
     Active Substance: CARVEDILOL
  16. HYDROXYCHLOROQUINE [Concomitant]
     Active Substance: HYDROXYCHLOROQUINE
  17. INSULIN [Concomitant]
     Active Substance: INSULIN NOS
  18. BIOTIN [Concomitant]
     Active Substance: BIOTIN
  19. GABAPENTIN. [Concomitant]
     Active Substance: GABAPENTIN
  20. GENTAMYCIN [Concomitant]
     Active Substance: GENTAMICIN

REACTIONS (3)
  - Fluid overload [Recovering/Resolving]
  - Treatment noncompliance [Recovering/Resolving]
  - Hyperkalaemia [Recovering/Resolving]
